FAERS Safety Report 12701934 (Version 1)
Quarter: 2016Q3

REPORT INFORMATION
  Report Type: Spontaneous
  Country: US (occurrence: US)
  Receive Date: 20160831
  Receipt Date: 20160831
  Transmission Date: 20161109
  Serious: No
  Sender: FDA-Public Use
  Company Number: US-JAZZ-2016-US-007620

PATIENT
  Sex: Female
  Weight: 52.15 kg

DRUGS (24)
  1. BIOTIN [Concomitant]
     Active Substance: BIOTIN
  2. DOXYCYCLINE HYCLATE. [Concomitant]
     Active Substance: DOXYCYCLINE HYCLATE
     Indication: ACNE
  3. MAGNESIUM [Concomitant]
     Active Substance: MAGNESIUM
  4. MODAFINIL. [Concomitant]
     Active Substance: MODAFINIL
     Indication: NARCOLEPSY
  5. XYREM [Suspect]
     Active Substance: SODIUM OXYBATE
     Dosage: 2.5 G, SECOND DOSE
     Route: 048
     Dates: start: 2016
  6. VITAMIN C [Concomitant]
     Active Substance: ASCORBIC ACID
  7. XYREM [Suspect]
     Active Substance: SODIUM OXYBATE
     Dosage: 3 G, FIRST DOSE
     Route: 048
     Dates: start: 2016
  8. GLUCOSAMINE SULFATE [Concomitant]
     Active Substance: GLUCOSAMINE SULFATE
  9. IRON [Concomitant]
     Active Substance: IRON
  10. PRENATAL [Concomitant]
     Active Substance: VITAMINS
  11. ZINC GLUCONATE [Concomitant]
     Active Substance: ZINC GLUCONATE
  12. XYREM [Suspect]
     Active Substance: SODIUM OXYBATE
     Indication: CATAPLEXY
     Dosage: DOSE ADJUSTMENTS
     Route: 048
  13. CLARITIN [Concomitant]
     Active Substance: LORATADINE
     Indication: HYPERSENSITIVITY
  14. JUICE PLUS [Concomitant]
     Active Substance: DIETARY SUPPLEMENT
  15. TURMERIC [Concomitant]
     Active Substance: TURMERIC
  16. VITAMINS [Concomitant]
     Active Substance: VITAMINS
  17. XYREM [Suspect]
     Active Substance: SODIUM OXYBATE
     Indication: NARCOLEPSY
     Dosage: 2.25 G, BID
     Route: 048
     Dates: start: 20160418, end: 2016
  18. FISH OIL [Concomitant]
     Active Substance: FISH OIL
  19. MULTIVITAMINS [Concomitant]
     Active Substance: VITAMINS
  20. CALCIUM CARBASPIRIN [Concomitant]
  21. COCONUT OIL [Concomitant]
     Active Substance: COCONUT OIL
  22. PROBIOTICA [Concomitant]
     Active Substance: PROBIOTICS NOS
  23. SUDAFED [Concomitant]
     Active Substance: PSEUDOEPHEDRINE HYDROCHLORIDE
  24. VITAMIN B COMPLEX [Concomitant]
     Active Substance: CYANOCOBALAMIN\DEXPANTHENOL\NIACINAMIDE\PYRIDOXINE HYDROCHLORIDE\RIBOFLAVIN 5^-PHOSPHATE SODIUM\THIAMINE HYDROCHLORIDE\VITAMIN B COMPLEX

REACTIONS (5)
  - Condition aggravated [Not Recovered/Not Resolved]
  - Hangover [Unknown]
  - Dehydration [Unknown]
  - Fatigue [Not Recovered/Not Resolved]
  - Lethargy [Not Recovered/Not Resolved]
